APPROVED DRUG PRODUCT: VALTURNA
Active Ingredient: ALISKIREN HEMIFUMARATE; VALSARTAN
Strength: EQ 300MG BASE;320MG
Dosage Form/Route: TABLET;ORAL
Application: N022217 | Product #002
Applicant: NOVARTIS PHARMACEUTICALS CORP
Approved: Sep 16, 2009 | RLD: No | RS: No | Type: DISCN

PATENTS:
Patent 8168616 | Expires: Jul 3, 2026